FAERS Safety Report 6436832-8 (Version None)
Quarter: 2009Q4

REPORT INFORMATION
  Report Type: 
  Country: None (occurrence: None)
  Receive Date: 20091109
  Receipt Date: 20091029
  Transmission Date: 20100525
  Serious: Yes (Hospitalization)
  Sender: FDA-Public Use
  Company Number: 1-20563852

PATIENT
  Age: 13 Year
  Sex: Male

DRUGS (3)
  1. QUALAQUIN [Suspect]
     Indication: PLASMODIUM FALCIPARUM INFECTION
     Dosage: 1 CAPSULE, TWICE DAILY, ORAL
     Route: 048
     Dates: start: 20090724
  2. QUININE SULFATE [Suspect]
     Indication: PLASMODIUM FALCIPARUM INFECTION
     Dosage: INTRAVENOUS
     Route: 042
     Dates: start: 20090701
  3. UNKNOWN HOLISTIC VITAMINS [Concomitant]

REACTIONS (2)
  - DECREASED APPETITE [None]
  - VOMITING [None]
